FAERS Safety Report 24084623 (Version 7)
Quarter: 2025Q2

REPORT INFORMATION
  Report Type: Report from Study
  Country: US (occurrence: US)
  Receive Date: 20240712
  Receipt Date: 20250422
  Transmission Date: 20250717
  Serious: Yes (Other)
  Sender: BOEHRINGER INGELHEIM
  Company Number: US-BoehringerIngelheim-2024-BI-029866

PATIENT
  Age: 72 Year
  Sex: Female

DRUGS (4)
  1. OFEV [Suspect]
     Active Substance: NINTEDANIB
     Indication: Idiopathic pulmonary fibrosis
     Dates: start: 2023
  2. OFEV [Suspect]
     Active Substance: NINTEDANIB
     Dates: start: 20231006
  3. OFEV [Suspect]
     Active Substance: NINTEDANIB
     Dates: start: 20240301, end: 20240531
  4. OFEV [Suspect]
     Active Substance: NINTEDANIB
     Dates: start: 20240623

REACTIONS (22)
  - Hypertensive heart disease [Not Recovered/Not Resolved]
  - Gastrointestinal polyp haemorrhage [Recovered/Resolved]
  - Haematochezia [Recovered/Resolved]
  - Cough [Recovered/Resolved]
  - Breath sounds abnormal [Not Recovered/Not Resolved]
  - Ageusia [Not Recovered/Not Resolved]
  - Fatigue [Not Recovered/Not Resolved]
  - Upper-airway cough syndrome [Not Recovered/Not Resolved]
  - Diarrhoea [Not Recovered/Not Resolved]
  - Diverticulitis [Not Recovered/Not Resolved]
  - Weight decreased [Not Recovered/Not Resolved]
  - Ageusia [Recovered/Resolved]
  - Productive cough [Not Recovered/Not Resolved]
  - Memory impairment [Not Recovered/Not Resolved]
  - Faeces soft [Not Recovered/Not Resolved]
  - Decreased appetite [Not Recovered/Not Resolved]
  - Faecal volume decreased [Not Recovered/Not Resolved]
  - Haemorrhage [Not Recovered/Not Resolved]
  - Diarrhoea [Recovered/Resolved]
  - Nasopharyngitis [Unknown]
  - Dyspnoea exertional [Not Recovered/Not Resolved]
  - Flatulence [Unknown]

NARRATIVE: CASE EVENT DATE: 20230101
